FAERS Safety Report 13676887 (Version 2)
Quarter: 2017Q3

REPORT INFORMATION
  Report Type: Spontaneous
  Country: JP (occurrence: JP)
  Receive Date: 20170622
  Receipt Date: 20170711
  Transmission Date: 20171127
  Serious: Yes (Disabling, Other)
  Sender: FDA-Public Use
  Company Number: JP-BRISTOL-MYERS SQUIBB COMPANY-BMS-2017-055215

PATIENT
  Age: 48 Year
  Sex: Male

DRUGS (1)
  1. ABILIFY [Suspect]
     Active Substance: ARIPIPRAZOLE
     Indication: SCHIZOPHRENIA
     Dosage: 6 MG, UNK
     Route: 048
     Dates: start: 201005

REACTIONS (3)
  - Tardive dyskinesia [Unknown]
  - Disability [Unknown]
  - Dystonia [Unknown]
